FAERS Safety Report 8490215-8 (Version None)
Quarter: 2012Q3

REPORT INFORMATION
  Report Type: 
  Country: None (occurrence: None)
  Receive Date: 20120705
  Receipt Date: 20110927
  Transmission Date: 20120928
  Serious: No
  Sender: FDA-Public Use
  Company Number: US-BAUSCH-2011BL006487

PATIENT
  Age: 42 Year
  Sex: Female

DRUGS (3)
  1. OPCON-A [Suspect]
     Indication: OCULAR HYPERAEMIA
     Route: 047
     Dates: start: 20110913
  2. OPCON-A [Suspect]
     Indication: HYPERSENSITIVITY
     Route: 047
     Dates: start: 20110913
  3. OPCON-A [Suspect]
     Indication: EYE PRURITUS
     Route: 047
     Dates: start: 20110913

REACTIONS (3)
  - EXPIRED DRUG ADMINISTERED [None]
  - EYE PAIN [None]
  - EYE IRRITATION [None]
